FAERS Safety Report 6401491-7 (Version None)
Quarter: 2009Q4

REPORT INFORMATION
  Report Type: 
  Country: None (occurrence: None)
  Receive Date: 20091015
  Receipt Date: 20091001
  Transmission Date: 20100525
  Serious: Yes (Hospitalization, Other)
  Sender: FDA-Public Use
  Company Number: IL-GENENTECH-291852

PATIENT
  Age: 67 Year
  Sex: Male

DRUGS (1)
  1. MABTHERA [Suspect]
     Indication: HAIRY CELL LEUKAEMIA
     Dosage: 800 MG, UNK
     Route: 042
     Dates: start: 20090729

REACTIONS (2)
  - COLORECTAL CANCER METASTATIC [None]
  - TUMOUR HAEMORRHAGE [None]
